FAERS Safety Report 5060915-0 (Version None)
Quarter: 2006Q3

REPORT INFORMATION
  Report Type: 
  Country: None (occurrence: None)
  Receive Date: 20060720
  Receipt Date: 20060720
  Transmission Date: 20061208
  Serious: Yes (Hospitalization)
  Sender: FDA-Public Use
  Company Number: None

PATIENT
  Age: 76 Year
  Sex: Male
  Weight: 80.2867 kg

DRUGS (4)
  1. ERBITUX [Suspect]
     Indication: DISEASE RECURRENCE
     Dosage: 525 MG -1X LOADING DOSE  840MG     1 X WEEK  IV DRIP
     Route: 041
     Dates: start: 20060403, end: 20060710
  2. ERBITUX [Suspect]
     Indication: MULTIPLE MYELOMA
     Dosage: 525 MG -1X LOADING DOSE  840MG     1 X WEEK  IV DRIP
     Route: 041
     Dates: start: 20060403, end: 20060710
  3. DECADRON [Concomitant]
  4. ARANESP [Concomitant]

REACTIONS (8)
  - ACUTE MYOCARDIAL INFARCTION [None]
  - ASTHENIA [None]
  - CARDIAC FAILURE CONGESTIVE [None]
  - EPISTAXIS [None]
  - HYPERVOLAEMIA [None]
  - HYPOXIA [None]
  - MENTAL STATUS CHANGES [None]
  - VOLUME BLOOD INCREASED [None]
